FAERS Safety Report 15812155 (Version 1)
Quarter: 2019Q1

REPORT INFORMATION
  Report Type: Spontaneous
  Country: US (occurrence: US)
  Receive Date: 20190111
  Receipt Date: 20190111
  Transmission Date: 20190417
  Serious: Yes (Other)
  Sender: FDA-Public Use
  Company Number: US-AMREGENT-20190013

PATIENT
  Age: 15 Year
  Sex: Male

DRUGS (4)
  1. ESMOLOL HYDROCHLORIDE INJECTION (0517-1810-01) [Suspect]
     Active Substance: ESMOLOL HYDROCHLORIDE
     Dosage: INFUSIONS; UNKNOWN
     Route: 042
  2. POSACONAZOLE [Suspect]
     Active Substance: POSACONAZOLE
     Dosage: UNKNOWN
     Route: 065
  3. TRIMETHOPRIM/SULFAMETHOXAZOLE [Suspect]
     Active Substance: SULFAMETHOXAZOLE\TRIMETHOPRIM
     Dosage: UNKNOWN
     Route: 065
  4. NICARDIPINE HYDROCHLORIDE INJECTION (0735-10) [Suspect]
     Active Substance: NICARDIPINE HYDROCHLORIDE
     Dosage: INFUSIONS; UNKNOWN
     Route: 042

REACTIONS (6)
  - Normetanephrine urine increased [Unknown]
  - Blood catecholamines increased [Unknown]
  - Product use issue [Unknown]
  - Endocrine test abnormal [Unknown]
  - Catecholamines urine increased [Unknown]
  - Product use in unapproved indication [Unknown]
